FAERS Safety Report 8837456 (Version 2)
Quarter: 2012Q4

REPORT INFORMATION
  Report Type: 
  Country: GB (occurrence: GB)
  Receive Date: 20121012
  Receipt Date: 20121109
  Transmission Date: 20130627
  Serious: Yes (Hospitalization, Other)
  Sender: FDA-Public Use
  Company Number: GB-JNJFOC-20121006047

PATIENT
  Age: 33 Year
  Sex: Male

DRUGS (2)
  1. ACETAMINOPHEN [Suspect]
     Route: 065
  2. ACETAMINOPHEN [Suspect]
     Indication: PRODUCT USED FOR UNKNOWN INDICATION
     Route: 065

REACTIONS (11)
  - Acute hepatic failure [Unknown]
  - Overdose [Unknown]
  - Liver transplant [None]
  - Post procedural infection [None]
  - Bronchopulmonary aspergillosis [None]
  - Cerebral aspergillosis [None]
  - Aspergillosis [None]
  - Haemorrhage [None]
  - Procedural complication [None]
  - Complications of transplanted liver [None]
  - Renal impairment [None]
